FAERS Safety Report 7818917-4 (Version None)
Quarter: 2011Q4

REPORT INFORMATION
  Report Type: 
  Country: None (occurrence: None)
  Receive Date: 20111017
  Receipt Date: 20111017
  Transmission Date: 20120403
  Serious: Yes (Hospitalization)
  Sender: FDA-Public Use
  Company Number: None

PATIENT
  Sex: Female
  Weight: 76.39 kg

DRUGS (12)
  1. TAXOL [Suspect]
     Dosage: 330 MG
     Dates: end: 20111005
  2. CENTRUM COMPLETE [Concomitant]
  3. WARFARIN SODIUM [Concomitant]
  4. CARBOPLATIN [Suspect]
     Dosage: 525 MG
     Dates: end: 20111005
  5. POLYETHYLENE GLYCOL [Concomitant]
  6. LASIX [Concomitant]
  7. COMPAZINE [Concomitant]
  8. DOCOSAHEXANOIC ACID/EPA [Concomitant]
  9. NASACORT [Concomitant]
  10. COLACE [Concomitant]
  11. PEPCID [Concomitant]
  12. ZOFRAN ODT [Concomitant]

REACTIONS (9)
  - ABDOMINAL DISTENSION [None]
  - FLUID INTAKE RESTRICTION [None]
  - ASCITES [None]
  - ERUCTATION [None]
  - VOMITING [None]
  - NAUSEA [None]
  - EATING DISORDER [None]
  - ASTHENIA [None]
  - NEUTROPENIA [None]
